FAERS Safety Report 5330969-2 (Version None)
Quarter: 2007Q2

REPORT INFORMATION
  Report Type: 
  Country: None (occurrence: None)
  Receive Date: 20070522
  Receipt Date: 20070509
  Transmission Date: 20071010
  Serious: Yes (Other)
  Sender: FDA-Public Use
  Company Number: US-AMGEN-STX221342

PATIENT
  Sex: Male
  Weight: 68.6 kg

DRUGS (7)
  1. ENBREL [Suspect]
     Indication: PSORIATIC ARTHROPATHY
     Route: 058
     Dates: start: 20060913
  2. PREDNISONE TAB [Suspect]
  3. CORTISONE ACETATE [Concomitant]
  4. OXYCONTIN [Concomitant]
     Dates: start: 20040101
  5. FOSAMAX [Concomitant]
     Dates: start: 20050101
  6. LOPID [Concomitant]
  7. METHOTREXATE [Concomitant]
     Route: 048
     Dates: start: 20070201

REACTIONS (2)
  - DIABETES MELLITUS [None]
  - INJECTION SITE BRUISING [None]
